FAERS Safety Report 10162074 (Version 1)
Quarter: 2014Q2

REPORT INFORMATION
  Report Type: Spontaneous
  Country: US (occurrence: US)
  Receive Date: 20140509
  Receipt Date: 20140509
  Transmission Date: 20141212
  Serious: Yes (Hospitalization, Other)
  Sender: FDA-Public Use
  Company Number: US-ASTRAZENECA-2014SE30176

PATIENT
  Age: 21477 Day
  Sex: Male
  Weight: 73.5 kg

DRUGS (2)
  1. NEXIUM [Suspect]
     Indication: GASTROOESOPHAGEAL REFLUX DISEASE
     Route: 048
  2. MILOXICAM [Concomitant]
     Indication: ARTHRITIS
     Route: 048
     Dates: start: 201308

REACTIONS (2)
  - Nerve injury [Unknown]
  - Paraesthesia [Recovered/Resolved]
